FAERS Safety Report 7981588-0 (Version None)
Quarter: 2011Q4

REPORT INFORMATION
  Report Type: 
  Country: None (occurrence: None)
  Receive Date: 20111213
  Receipt Date: 20111202
  Transmission Date: 20120403
  Serious: Yes (Hospitalization)
  Sender: FDA-Public Use
  Company Number: DSJ-2011-25769

PATIENT
  Age: 67 Year
  Sex: Male

DRUGS (2)
  1. OFLOXACIN [Suspect]
     Indication: EXTERNAL EAR INFLAMMATION
     Dosage: 3-4 DROPS X 2 TIMES (2 IN 1 D), AURICULAR (OTIC)
     Dates: start: 20110917, end: 20110926
  2. RINDERON (BETAMETHASONE) (PREPARATION FOR EXTERNAL USE (NOS)) (BETAMET [Concomitant]

REACTIONS (2)
  - DRUG ERUPTION [None]
  - RENAL FAILURE [None]
